FAERS Safety Report 16927870 (Version 2)
Quarter: 2020Q1

REPORT INFORMATION
  Report Type: Spontaneous
  Country: GB (occurrence: GB)
  Receive Date: 20191017
  Receipt Date: 20200116
  Transmission Date: 20200409
  Serious: Yes (Disabling, Other)
  Sender: FDA-Public Use
  Company Number: GB-DRREDDYS-GER/UKI/19/0115125

PATIENT
  Age: 10 Year
  Sex: Male
  Weight: 36 kg

DRUGS (2)
  1. MOVICOL [Concomitant]
     Active Substance: POLYETHYLENE GLYCOL 3350\POTASSIUM CHLORIDE\SODIUM BICARBONATE\SODIUM CHLORIDE
     Indication: PRODUCT USED FOR UNKNOWN INDICATION
     Route: 065
  2. MONTELUKAST [Suspect]
     Active Substance: MONTELUKAST SODIUM
     Indication: COUGH
     Dosage: 1 DF
     Route: 048
     Dates: start: 20190228, end: 20190430

REACTIONS (10)
  - Panic attack [Recovering/Resolving]
  - Sleep terror [Recovering/Resolving]
  - Hallucination [Unknown]
  - Anxiety [Not Recovered/Not Resolved]
  - Insomnia [Recovering/Resolving]
  - Depression suicidal [Recovering/Resolving]
  - Aggression [Recovering/Resolving]
  - Dyskinesia [Recovering/Resolving]
  - Tic [Unknown]
  - Aggression [Unknown]

NARRATIVE: CASE EVENT DATE: 201903
